FAERS Safety Report 8243843 (Version 3)
Quarter: 2013Q4

REPORT INFORMATION
  Report Type: Report from Study
  Country: JP (occurrence: JP)
  Receive Date: 20111114
  Receipt Date: 20131209
  Transmission Date: 20140711
  Serious: Yes (Life-Threatening, Hospitalization)
  Sender: FDA-Public Use
  Company Number: JP-BRISTOL-MYERS SQUIBB COMPANY-16216996

PATIENT
  Age: 45 Year
  Sex: Male
  Weight: 63.4 kg

DRUGS (3)
  1. SPRYCEL [Suspect]
     Indication: CHRONIC MYELOID LEUKAEMIA
     Route: 048
     Dates: start: 20111015, end: 20111026
  2. MUCOSTA [Concomitant]
     Indication: CHRONIC MYELOID LEUKAEMIA
     Route: 048
     Dates: start: 20111015, end: 20111026
  3. GASMOTIN [Concomitant]
     Indication: CHRONIC MYELOID LEUKAEMIA
     Route: 048
     Dates: start: 20111024, end: 20111026

REACTIONS (5)
  - Prinzmetal angina [Recovered/Resolved]
  - Cardiac failure congestive [Recovered/Resolved]
  - Cardiogenic shock [Recovered/Resolved]
  - Pulmonary oedema [Recovered/Resolved]
  - Pleural effusion [Recovered/Resolved]
